FAERS Safety Report 8416563-5 (Version None)
Quarter: 2012Q2

REPORT INFORMATION
  Report Type: 
  Country: None (occurrence: None)
  Receive Date: 20120323
  Receipt Date: 20110212
  Transmission Date: 20120825
  Serious: Yes (Hospitalization)
  Sender: FDA-Public Use
  Company Number: 163-21880-11021833

PATIENT
  Age: 77 Year
  Sex: Male

DRUGS (3)
  1. REVLIMID [Suspect]
     Indication: MULTIPLE MYELOMA
     Dosage: 10 MG, 1 IN 1 D, PO ; 15 MG, 1 IN 1 D, PO ; 5 MG, 1 IN 2 D, PO
     Route: 048
     Dates: start: 20100601
  2. REVLIMID [Suspect]
     Indication: MULTIPLE MYELOMA
     Dosage: 10 MG, 1 IN 1 D, PO ; 15 MG, 1 IN 1 D, PO ; 5 MG, 1 IN 2 D, PO
     Route: 048
     Dates: start: 20100901
  3. REVLIMID [Suspect]
     Indication: MULTIPLE MYELOMA
     Dosage: 10 MG, 1 IN 1 D, PO ; 15 MG, 1 IN 1 D, PO ; 5 MG, 1 IN 2 D, PO
     Route: 048
     Dates: start: 20110101

REACTIONS (2)
  - PNEUMONIA [None]
  - NEUTROPENIA [None]
